FAERS Safety Report 7789443-6 (Version None)
Quarter: 2011Q3

REPORT INFORMATION
  Report Type: 
  Country: None (occurrence: None)
  Receive Date: 20110930
  Receipt Date: 20110922
  Transmission Date: 20111222
  Serious: Yes (Other)
  Sender: FDA-Public Use
  Company Number: IT-ACTELION-A-CH2007-15660

PATIENT
  Sex: Male
  Weight: 80 kg

DRUGS (10)
  1. VITAMIN E [Concomitant]
  2. ESKIM [Concomitant]
  3. TAMSULOSIN HCL [Concomitant]
  4. RAMIPRIL [Concomitant]
  5. SOLIFENACIN SUCCINATE [Concomitant]
  6. ZAVESCA [Suspect]
     Dosage: 500 MG, QD
     Route: 048
     Dates: start: 20070202
  7. ZAVESCA [Suspect]
     Dosage: 200 MG, QD
     Route: 048
     Dates: start: 20110728
  8. NEURONTIN [Concomitant]
     Dates: start: 20030101
  9. ZAVESCA [Suspect]
     Indication: LIPIDOSIS
     Dosage: 200 MG, TID
     Route: 048
     Dates: start: 20061227, end: 20070201
  10. ZAVESCA [Suspect]
     Dosage: 100 MG, TID
     Route: 048
     Dates: end: 20110727

REACTIONS (5)
  - DIARRHOEA [None]
  - DEPRESSION [None]
  - INTENTION TREMOR [None]
  - DISEASE PROGRESSION [None]
  - WEIGHT DECREASED [None]
